FAERS Safety Report 13665100 (Version 1)
Quarter: 2017Q2

REPORT INFORMATION
  Report Type: Spontaneous
  Country: US (occurrence: US)
  Receive Date: 20170619
  Receipt Date: 20170619
  Transmission Date: 20170830
  Serious: Yes (Hospitalization)
  Sender: FDA-Public Use
  Company Number: None

PATIENT
  Age: 74 Year
  Sex: Male

DRUGS (16)
  1. TRADJENTA [Concomitant]
     Active Substance: LINAGLIPTIN
  2. LISINOPRIL. [Concomitant]
     Active Substance: LISINOPRIL
  3. FUROSEMIDE. [Concomitant]
     Active Substance: FUROSEMIDE
  4. EPOGEN [Suspect]
     Active Substance: ERYTHROPOIETIN
     Indication: BLOOD DISORDER
     Route: 058
  5. TAMSULOSIN [Concomitant]
     Active Substance: TAMSULOSIN
  6. POT CHLORIDE [Concomitant]
     Active Substance: POTASSIUM CHLORIDE
  7. METOPROLOL. [Concomitant]
     Active Substance: METOPROLOL
  8. TRUE METRIX TED GLUCOSE [Concomitant]
  9. NIFEDICAL XL [Concomitant]
     Active Substance: NIFEDIPINE
  10. CARVEDILOL. [Concomitant]
     Active Substance: CARVEDILOL
  11. ATORVASTATIN [Concomitant]
     Active Substance: ATORVASTATIN
  12. BD PEN NEEDSLE MIS [Concomitant]
  13. LEVEMIR [Concomitant]
     Active Substance: INSULIN DETEMIR
  14. ATORVASTATIN [Concomitant]
     Active Substance: ATORVASTATIN
  15. MINOXIDIL. [Concomitant]
     Active Substance: MINOXIDIL
  16. CIPRO [Concomitant]
     Active Substance: CIPROFLOXACIN HYDROCHLORIDE

REACTIONS (1)
  - Drug dose omission [None]

NARRATIVE: CASE EVENT DATE: 20170616
